FAERS Safety Report 17298818 (Version 1)
Quarter: 2020Q1

REPORT INFORMATION
  Report Type: Spontaneous
  Country: US (occurrence: US)
  Receive Date: 20200103
  Receipt Date: 20200103
  Transmission Date: 20200409
  Serious: No
  Sender: FDA-Public Use
  Company Number: None

PATIENT
  Age: 60 Year
  Sex: Female

DRUGS (1)
  1. SIROLIMUS TAB 2MG [Suspect]
     Active Substance: SIROLIMUS
     Route: 048
     Dates: start: 201908

REACTIONS (3)
  - Stomatitis [None]
  - Lip swelling [None]
  - Drug hypersensitivity [None]

NARRATIVE: CASE EVENT DATE: 20200101
